FAERS Safety Report 7445268-2 (Version None)
Quarter: 2011Q2

REPORT INFORMATION
  Report Type: 
  Country: None (occurrence: None)
  Receive Date: 20110429
  Receipt Date: 20110418
  Transmission Date: 20111010
  Serious: Yes (Death, Other)
  Sender: FDA-Public Use
  Company Number: JP-BAYER-201013781BYL

PATIENT
  Age: 82 Year
  Sex: Female
  Weight: 48 kg

DRUGS (16)
  1. AMINOLEBAN EN [Concomitant]
     Dosage: DAILY DOSE 100 G
     Route: 048
  2. NEXAVAR [Suspect]
     Dosage: 200 MG (DAILY DOSE), , ORAL
     Route: 048
     Dates: start: 20100818, end: 20100824
  3. NEXAVAR [Suspect]
     Dosage: DAILY DOSE 400 MG
     Route: 048
     Dates: start: 20100917
  4. DIGOXIN [Concomitant]
     Dosage: DAILY DOSE .125 MG
     Route: 048
  5. NEXAVAR [Suspect]
     Indication: HEPATIC NEOPLASM MALIGNANT
     Route: 048
     Dates: start: 20100714, end: 20100722
  6. BIOFERMIN [Concomitant]
     Dosage: DAILY DOSE 3 G
     Route: 048
  7. ETODOLAC [Concomitant]
     Dosage: DAILY DOSE 400 MG
     Route: 048
  8. METFORMIN HCL [Concomitant]
     Dosage: DAILY DOSE 750 MG
     Route: 048
  9. SUNRYTHM [Concomitant]
     Dosage: DAILY DOSE 100 MG
     Route: 048
  10. LENDORMIN DAINIPPO [Concomitant]
     Dosage: DAILY DOSE .25 MG
     Route: 048
  11. URSO 250 [Concomitant]
     Dosage: DAILY DOSE 600 MG
     Route: 048
  12. NEXAVAR [Suspect]
     Dosage: 600 MG (DAILY DOSE), , ORAL
     Route: 048
     Dates: start: 20100723, end: 20100817
  13. GASCON [Concomitant]
     Dosage: DAILY DOSE 120 MG
     Route: 048
  14. NEXAVAR [Suspect]
     Dosage: DAILY DOSE 600 MG
     Route: 048
     Dates: start: 20100903, end: 20100916
  15. MYSLEE [Concomitant]
     Dosage: DAILY DOSE 5 MG
     Route: 048
  16. UREPEARL [Concomitant]
     Route: 061

REACTIONS (4)
  - HEPATIC NEOPLASM MALIGNANT [None]
  - BLOOD AMYLASE INCREASED [None]
  - MUSCULAR WEAKNESS [None]
  - BLOOD CREATINE PHOSPHOKINASE INCREASED [None]
